FAERS Safety Report 5947109-9 (Version None)
Quarter: 2008Q4

REPORT INFORMATION
  Report Type: 
  Country: None (occurrence: None)
  Receive Date: 20081110
  Receipt Date: 20081027
  Transmission Date: 20090506
  Serious: Yes (Hospitalization)
  Sender: FDA-Public Use
  Company Number: IL-GENENTECH-270530

PATIENT
  Age: 70 Year
  Sex: Male

DRUGS (6)
  1. XOLAIR [Suspect]
     Indication: ASTHMA
     Dosage: 375 MG, SINGLE
     Dates: start: 20081016
  2. FLUTICASONE PROPIONATE/SALMETEROL XINAFOATE [Concomitant]
     Indication: DRUG USE FOR UNKNOWN INDICATION
  3. ALBUTEROL SULFATE [Concomitant]
     Indication: DRUG USE FOR UNKNOWN INDICATION
  4. IPRATROPIUM BROMIDE [Concomitant]
     Indication: DRUG USE FOR UNKNOWN INDICATION
  5. ALENDRONATE SODIUM [Concomitant]
     Indication: DRUG USE FOR UNKNOWN INDICATION
  6. OMEPRAZOLE [Concomitant]
     Indication: DRUG USE FOR UNKNOWN INDICATION

REACTIONS (1)
  - ASTHMA [None]
